FAERS Safety Report 7489897-9 (Version None)
Quarter: 2011Q2

REPORT INFORMATION
  Report Type: 
  Country: None (occurrence: None)
  Receive Date: 20110517
  Receipt Date: 20110517
  Transmission Date: 20111010
  Serious: Yes (Death)
  Sender: FDA-Public Use
  Company Number: None

PATIENT
  Sex: Male
  Weight: 130.6 kg

DRUGS (13)
  1. CLINDAMYCIN [Concomitant]
  2. LASIX [Concomitant]
  3. SERTRALINE HYDROCHLORIDE [Concomitant]
  4. HALDOL [Concomitant]
  5. KETOCONAZOLE [Concomitant]
  6. K+ [Concomitant]
  7. CIPRO [Concomitant]
  8. AZITHROMYCIN [Concomitant]
  9. LITHIUM CARBONATE [Concomitant]
  10. OMEPRAZOLE [Concomitant]
  11. HUMIRA [Suspect]
     Indication: PSORIATIC ARTHROPATHY
     Dosage: 40MG EVERY OTHER WEEK IM
     Route: 030
  12. SEROQUEL [Concomitant]
  13. DESONIDE [Concomitant]

REACTIONS (6)
  - RESPIRATORY DISTRESS [None]
  - PYREXIA [None]
  - VENTRICULAR FIBRILLATION [None]
  - VENTRICULAR TACHYCARDIA [None]
  - CARDIO-RESPIRATORY ARREST [None]
  - BLASTOMYCOSIS [None]
